FAERS Safety Report 25750583 (Version 1)
Quarter: 2025Q3

REPORT INFORMATION
  Report Type: Spontaneous
  Country: US (occurrence: US)
  Receive Date: 20250902
  Receipt Date: 20250902
  Transmission Date: 20251021
  Serious: No
  Sender: CELLTRION
  Company Number: US-CELLTRION INC.-2025US024217

PATIENT

DRUGS (2)
  1. VEGZELMA [Suspect]
     Active Substance: BEVACIZUMAB-ADCD
     Indication: Colon cancer
     Dosage: 357MG EVERY TWO WEEKS
     Route: 042
  2. VEGZELMA [Suspect]
     Active Substance: BEVACIZUMAB-ADCD
     Indication: Parkinson^s disease
     Dosage: 100/4ML EVERY 2 WEEKS
     Route: 042

REACTIONS (2)
  - Therapy cessation [Not Recovered/Not Resolved]
  - Intentional product use issue [Unknown]

NARRATIVE: CASE EVENT DATE: 20250306
